FAERS Safety Report 18703880 (Version 1)
Quarter: 2021Q1

REPORT INFORMATION
  Report Type: Spontaneous
  Country: US (occurrence: US)
  Receive Date: 20210106
  Receipt Date: 20210106
  Transmission Date: 20210419
  Serious: No
  Sender: FDA-Public Use
  Company Number: US-ELI_LILLY_AND_COMPANY-US202012004874

PATIENT
  Age: 58 Year
  Sex: Female

DRUGS (2)
  1. TRULICITY [Suspect]
     Active Substance: DULAGLUTIDE
     Indication: TYPE 2 DIABETES MELLITUS
     Dosage: 0.75 MG, OTHER (ONCE EVRY 10 DAYS)
     Route: 058
  2. TRULICITY [Suspect]
     Active Substance: DULAGLUTIDE
     Indication: TYPE 2 DIABETES MELLITUS
     Dosage: 1.5 MG, OTHER (ONCE EVERY 10 DAYS)
     Route: 058

REACTIONS (7)
  - Blood glucose increased [Recovering/Resolving]
  - Eructation [Recovered/Resolved]
  - Diarrhoea [Recovered/Resolved]
  - Diabetic retinopathy [Unknown]
  - Inappropriate schedule of product administration [Unknown]
  - Vomiting [Recovered/Resolved]
  - Accidental underdose [Unknown]

NARRATIVE: CASE EVENT DATE: 20201202
